FAERS Safety Report 6114508-4 (Version None)
Quarter: 2009Q1

REPORT INFORMATION
  Report Type: 
  Country: None (occurrence: None)
  Receive Date: 20090313
  Receipt Date: 20090310
  Transmission Date: 20090719
  Serious: Yes (Hospitalization)
  Sender: FDA-Public Use
  Company Number: US-BRISTOL-MYERS SQUIBB COMPANY-14514392

PATIENT
  Age: 79 Year
  Sex: Male

DRUGS (15)
  1. SPRYCEL [Suspect]
     Indication: ACUTE LYMPHOCYTIC LEUKAEMIA
     Dosage: HELD ON 14FEB09 AND RESUMED ON 17FEB09. REDUCED DOSE 1TAB QD
     Route: 048
     Dates: start: 20090211
  2. CHEMOTHERAPY [Suspect]
     Route: 042
  3. METOPROLOL TARTRATE [Concomitant]
     Route: 048
  4. ALLOPURINOL [Concomitant]
     Route: 048
  5. MULTI-VITAMIN [Concomitant]
     Route: 048
  6. CENTRUM SILVER [Concomitant]
     Route: 048
  7. PROTONIX [Concomitant]
     Route: 048
  8. ASPIRIN [Concomitant]
     Route: 048
  9. LISINOPRIL [Concomitant]
     Route: 048
  10. SIMVASTATIN [Concomitant]
     Route: 048
  11. PREDNISONE [Concomitant]
     Route: 048
  12. PROMETHAZINE [Concomitant]
     Route: 048
  13. ATIVAN [Concomitant]
     Route: 048
  14. CHONDROITIN SULFATE + GLUCOSAMINE [Concomitant]
     Route: 048
  15. INDAPAMIDE [Concomitant]
     Route: 048

REACTIONS (3)
  - DEHYDRATION [None]
  - DIARRHOEA [None]
  - OEDEMA PERIPHERAL [None]
